FAERS Safety Report 12051996 (Version 1)
Quarter: 2016Q1

REPORT INFORMATION
  Report Type: Spontaneous
  Country: CH (occurrence: CH)
  Receive Date: 20160209
  Receipt Date: 20160209
  Transmission Date: 20160526
  Serious: Yes (Disabling)
  Sender: FDA-Public Use
  Company Number: CH-009507513-1512CHE014626

PATIENT
  Age: 39 Year
  Sex: Female

DRUGS (1)
  1. AERIUS [Suspect]
     Active Substance: DESLORATADINE
     Indication: ANGIOEDEMA
     Dosage: 5 MG, QID
     Dates: start: 201310

REACTIONS (7)
  - Fatigue [Not Recovered/Not Resolved]
  - Somnolence [Not Recovered/Not Resolved]
  - Disturbance in attention [Not Recovered/Not Resolved]
  - Drug prescribing error [Not Recovered/Not Resolved]
  - Product use issue [Unknown]
  - Drug effect incomplete [Not Recovered/Not Resolved]
  - Off label use [Unknown]

NARRATIVE: CASE EVENT DATE: 20131001
